FAERS Safety Report 16993368 (Version 1)
Quarter: 2019Q4

REPORT INFORMATION
  Report Type: Spontaneous
  Country: US (occurrence: US)
  Receive Date: 20191104
  Receipt Date: 20191104
  Transmission Date: 20200122
  Serious: Yes (Hospitalization)
  Sender: FDA-Public Use
  Company Number: None

PATIENT
  Age: 62 Year
  Sex: Male

DRUGS (5)
  1. SIROLIMUS 2MG [Concomitant]
     Active Substance: SIROLIMUS
  2. ASPIRIN. [Concomitant]
     Active Substance: ASPIRIN
  3. TACROLIMUS. [Suspect]
     Active Substance: TACROLIMUS
     Indication: RENAL TRANSPLANT
     Route: 048
     Dates: start: 20160310
  4. SIROLIMUS. [Suspect]
     Active Substance: SIROLIMUS
     Indication: PANCREAS TRANSPLANT
     Route: 048
     Dates: start: 20190815
  5. PREDNISONE 5MG [Concomitant]
     Active Substance: PREDNISONE

REACTIONS (1)
  - Surgery [None]

NARRATIVE: CASE EVENT DATE: 20191023
